FAERS Safety Report 8533931-1 (Version None)
Quarter: 2012Q3

REPORT INFORMATION
  Report Type: 
  Country: None (occurrence: None)
  Receive Date: 20120724
  Receipt Date: 20120717
  Transmission Date: 20120928
  Serious: Yes (Other)
  Sender: FDA-Public Use
  Company Number: US-ROCHE-1089538

PATIENT
  Sex: Female

DRUGS (2)
  1. XELODA [Suspect]
     Indication: BREAST CANCER
     Route: 048
  2. LAPATINIB [Suspect]
     Indication: BREAST CANCER
     Route: 048

REACTIONS (9)
  - BREAST NEOPLASM [None]
  - RHINALGIA [None]
  - LIP INJURY [None]
  - SKIN CHAPPED [None]
  - SKIN HYPERTROPHY [None]
  - SCAB [None]
  - SKIN ULCER [None]
  - DIARRHOEA [None]
  - DISEASE PROGRESSION [None]
